FAERS Safety Report 9474699 (Version 2)
Quarter: 2013Q3

REPORT INFORMATION
  Report Type: Report from Study
  Country: US (occurrence: US)
  Receive Date: 20130823
  Receipt Date: 20130823
  Transmission Date: 20140515
  Serious: Yes (Hospitalization)
  Sender: FDA-Public Use
  Company Number: US-VERTEX PHARMACEUTICALS INC-AE-2012-007902

PATIENT
  Age: 34 Year
  Sex: Female

DRUGS (1)
  1. VX-770 [Suspect]
     Indication: CYSTIC FIBROSIS
     Dosage: 150 MG, BID
     Route: 048
     Dates: start: 20120427

REACTIONS (4)
  - Staphylococcal infection [Recovered/Resolved]
  - Renal impairment [Unknown]
  - Swelling face [Unknown]
  - Skin irritation [Unknown]
